FAERS Safety Report 24121334 (Version 6)
Quarter: 2025Q3

REPORT INFORMATION
  Report Type: Spontaneous
  Country: US (occurrence: US)
  Receive Date: 20240722
  Receipt Date: 20250818
  Transmission Date: 20251021
  Serious: Yes (Hospitalization, Other)
  Sender: ALEXION PHARMACEUTICALS
  Company Number: 2024A166184

PATIENT
  Age: 69 Year
  Sex: Male
  Weight: 68.66 kg

DRUGS (24)
  1. LYNPARZA [Suspect]
     Active Substance: OLAPARIB
     Indication: Adenocarcinoma
  2. DOCETAXEL [Suspect]
     Active Substance: DOCETAXEL
     Indication: Adenocarcinoma
     Dosage: 75 MILLIGRAM, Q3W
     Dates: start: 20231114, end: 20231114
  3. DOCETAXEL [Suspect]
     Active Substance: DOCETAXEL
     Dosage: 75 MILLIGRAM, Q3W
     Dates: start: 20231205, end: 20231205
  4. DOCETAXEL [Suspect]
     Active Substance: DOCETAXEL
     Dosage: 75 MILLIGRAM, Q3W
     Dates: start: 20231227, end: 20231227
  5. DOCETAXEL [Suspect]
     Active Substance: DOCETAXEL
     Dosage: 75 MILLIGRAM, Q3W
     Dates: start: 20240116, end: 20240116
  6. DOCETAXEL [Suspect]
     Active Substance: DOCETAXEL
     Dosage: 75 MILLIGRAM, Q3W
     Dates: start: 20240206, end: 20240206
  7. DOCETAXEL [Suspect]
     Active Substance: DOCETAXEL
     Dosage: 75 MILLIGRAM, Q3W
     Dates: start: 20240319, end: 20240319
  8. DOCETAXEL [Suspect]
     Active Substance: DOCETAXEL
     Dosage: 75 MILLIGRAM, Q3W
     Dates: start: 20240409, end: 20240409
  9. DOCETAXEL [Suspect]
     Active Substance: DOCETAXEL
     Dosage: 75 MILLIGRAM, Q3W
     Dates: start: 20240430, end: 20240430
  10. DOCETAXEL [Suspect]
     Active Substance: DOCETAXEL
     Dosage: 75 MILLIGRAM, Q3W
     Dates: start: 20240521, end: 20240521
  11. VUDALIMAB [Suspect]
     Active Substance: VUDALIMAB
     Indication: Adenocarcinoma
     Dosage: 762 MILLIGRAM, Q2W
     Dates: start: 20231114
  12. AMLODIPINE [Concomitant]
     Active Substance: AMLODIPINE BESYLATE
  13. ACETAMINOPHEN\HYDROCODONE [Concomitant]
     Active Substance: ACETAMINOPHEN\HYDROCODONE
  14. POTASSIUM CHLORIDE [Concomitant]
     Active Substance: POTASSIUM CHLORIDE
  15. CALCIUM [Concomitant]
     Active Substance: CALCIUM
  16. VITAMIN C [Concomitant]
     Active Substance: ASCORBIC ACID
  17. VITAMIN D [Concomitant]
     Active Substance: VITAMIN D NOS
  18. ZINC [Concomitant]
     Active Substance: ZINC
  19. BEMPEDOIC ACID [Concomitant]
     Active Substance: BEMPEDOIC ACID
  20. POLYETHYLENE GLYCOL 3350 [Concomitant]
     Active Substance: POLYETHYLENE GLYCOL 3350
  21. TRIAMCINOLONE [Concomitant]
     Active Substance: TRIAMCINOLONE
  22. LEVOTHYROXINE [Concomitant]
     Active Substance: LEVOTHYROXINE
  23. PREDNISONE [Concomitant]
     Active Substance: PREDNISONE
  24. LEUPROLIDE [Concomitant]
     Active Substance: LEUPROLIDE

REACTIONS (6)
  - Metastases to bone [Unknown]
  - Inguinal hernia [Recovered/Resolved]
  - Prostatic specific antigen increased [Unknown]
  - Malignant neoplasm progression [Unknown]
  - Weight decreased [Unknown]
  - Nausea [Recovered/Resolved]

NARRATIVE: CASE EVENT DATE: 20240222
